FAERS Safety Report 23351572 (Version 2)
Quarter: 2024Q1

REPORT INFORMATION
  Report Type: Spontaneous
  Country: JP (occurrence: None)
  Receive Date: 20231229
  Receipt Date: 20240116
  Transmission Date: 20240409
  Serious: Yes (Death)
  Sender: FDA-Public Use
  Company Number: 2023A294379

PATIENT
  Age: 75 Year
  Sex: Male

DRUGS (2)
  1. DAPAGLIFLOZIN [Suspect]
     Active Substance: DAPAGLIFLOZIN
     Indication: Cardiac failure chronic
     Dosage: DOSE UNKNOWN
     Route: 048
     Dates: start: 20231221, end: 20231222
  2. LASIX [Concomitant]
     Active Substance: FUROSEMIDE

REACTIONS (1)
  - Brain stem infarction [Fatal]

NARRATIVE: CASE EVENT DATE: 20231222
